FAERS Safety Report 19432487 (Version 1)
Quarter: 2021Q2

REPORT INFORMATION
  Report Type: Spontaneous
  Country: CN (occurrence: CN)
  Receive Date: 20210618
  Receipt Date: 20210618
  Transmission Date: 20210717
  Serious: Yes (Other)
  Sender: FDA-Public Use
  Company Number: CN-SUN PHARMACEUTICAL INDUSTRIES LTD-2021R1-300381

PATIENT
  Age: 78 Year
  Sex: Female

DRUGS (2)
  1. TOMUDEX [Suspect]
     Active Substance: RALTITREXED
     Indication: CHEMOTHERAPY
     Dosage: 3 MG/METER SQUARE
     Route: 065
  2. OXALIPLATIN. [Suspect]
     Active Substance: OXALIPLATIN
     Indication: CHEMOTHERAPY
     Dosage: 130 MG/METER SQUARE
     Route: 065

REACTIONS (1)
  - Hypofibrinogenaemia [Not Recovered/Not Resolved]
